FAERS Safety Report 22228522 (Version 2)
Quarter: 2023Q2

REPORT INFORMATION
  Report Type: Spontaneous
  Country: GB (occurrence: GB)
  Receive Date: 20230419
  Receipt Date: 20230426
  Transmission Date: 20230721
  Serious: Yes (Other)
  Sender: FDA-Public Use
  Company Number: GB-JNJFOC-20230428609

PATIENT
  Age: 4 Decade

DRUGS (2)
  1. MINOXIDIL [Suspect]
     Active Substance: MINOXIDIL
     Indication: Alopecia
     Dosage: 3 MONTH SUPPLY, 3 UNITS X 60 ML. SPRAY IN HAIR FALL AREA (1ST WEEK ONCE EVERY 2 DAYS).
     Route: 061
     Dates: start: 20230314
  2. MINOXIDIL [Suspect]
     Active Substance: MINOXIDIL
     Dosage: 3 MONTH SUPPLY, 3 UNITS X 60 ML. SPRAY IN HAIR FALL AREA (2ND WEEK 4 TIMES PER WEEK).
     Route: 061
     Dates: start: 202303

REACTIONS (4)
  - Syncope [Recovered/Resolved]
  - Inappropriate schedule of product administration [Recovered/Resolved]
  - Acne [Recovered/Resolved]
  - Heart rate increased [Recovered/Resolved]

NARRATIVE: CASE EVENT DATE: 20230314
